FAERS Safety Report 6536567-7 (Version None)
Quarter: 2010Q1

REPORT INFORMATION
  Report Type: 
  Country: None (occurrence: None)
  Receive Date: 20100113
  Receipt Date: 20100108
  Transmission Date: 20100710
  Serious: Yes (Hospitalization, Other)
  Sender: FDA-Public Use
  Company Number: PHHY2008JP21956

PATIENT
  Age: 74 Year
  Sex: Male

DRUGS (1)
  1. VOLTAREN [Suspect]
     Indication: BACK PAIN
     Dosage: 50 MG, BID
     Route: 054

REACTIONS (9)
  - ABDOMINAL DISTENSION [None]
  - ABDOMINAL PAIN [None]
  - ASCITES [None]
  - GASTROINTESTINAL PERFORATION [None]
  - ILEAL ULCER PERFORATION [None]
  - ILEECTOMY [None]
  - INFLAMMATION [None]
  - SPINAL COLUMN STENOSIS [None]
  - SPINAL LAMINECTOMY [None]
